FAERS Safety Report 8965603 (Version 1)
Quarter: 2012Q4

REPORT INFORMATION
  Report Type: Spontaneous
  Country: GB (occurrence: None)
  Receive Date: 20121205
  Receipt Date: 20121205
  Transmission Date: 20130627
  Serious: Yes (Other)
  Sender: FDA-Public Use
  Company Number: AUR-APL-2012-05066

PATIENT
  Age: 74 Year
  Sex: Female

DRUGS (6)
  1. SIMVASTATIN (SIMVASTATIN) [Suspect]
     Indication: BLOOD CHOLESTEROL INCREASED
     Dates: end: 20121103
  2. LISINOPRIL (LISINOPRIL) [Suspect]
  3. ALLOPURINOL [Suspect]
  4. FRUSEMIDE (FUROSEMIDE) [Suspect]
  5. ZICRON [Suspect]
  6. WARFARIN (WARFARIN) [Suspect]

REACTIONS (3)
  - Hot flush [None]
  - Malaise [None]
  - Swelling face [None]
